FAERS Safety Report 5283943-9 (Version None)
Quarter: 2007Q1

REPORT INFORMATION
  Report Type: 
  Country: None (occurrence: None)
  Receive Date: 20070327
  Receipt Date: 20070314
  Transmission Date: 20070707
  Serious: Yes (Hospitalization)
  Sender: FDA-Public Use
  Company Number: US009727

PATIENT
  Age: 34 Year
  Sex: Male
  Weight: 83.9154 kg

DRUGS (5)
  1. MODAFINIL [Suspect]
     Indication: BIPOLAR I DISORDER
     Dosage: 100 MG QAM ORAL
     Route: 048
     Dates: start: 20020423, end: 20020509
  2. WELLBUTRIN [Suspect]
     Indication: DEPRESSION
     Dosage: 300 MG BID ORAL
     Route: 048
     Dates: start: 20011201, end: 20020509
  3. ZOLOFT [Suspect]
     Indication: DEPRESSION
     Dosage: 100 MG QD ORAL
     Route: 048
  4. DEPAKOTE [Concomitant]
  5. SERTRALINE [Concomitant]

REACTIONS (5)
  - AGGRESSION [None]
  - ANGER [None]
  - HEADACHE [None]
  - MANIA [None]
  - TREATMENT NONCOMPLIANCE [None]
